FAERS Safety Report 6213579-4 (Version None)
Quarter: 2009Q2

REPORT INFORMATION
  Report Type: 
  Country: None (occurrence: None)
  Receive Date: 20090601
  Receipt Date: 20090521
  Transmission Date: 20091009
  Serious: Yes (Hospitalization)
  Sender: FDA-Public Use
  Company Number: ADR1992009

PATIENT
  Age: 25 Year
  Sex: Female

DRUGS (4)
  1. LAMOTRIGINE [Suspect]
     Indication: EPILEPSY
     Dosage: 25 MG DAILY
  2. PHENYTOIN [Concomitant]
  3. RABEPRAZOLE SODIUM [Concomitant]
  4. LEVONORGESTREL + ETHINYL ESTRADIOL [Concomitant]

REACTIONS (11)
  - CARDIAC MURMUR [None]
  - CONJUNCTIVITIS [None]
  - GAMMA-GLUTAMYLTRANSFERASE INCREASED [None]
  - HYPERREFLEXIA [None]
  - LEUKOPENIA [None]
  - MENINGITIS VIRAL [None]
  - MYALGIA [None]
  - TACHYCARDIA [None]
  - THROMBOCYTOPENIA [None]
  - VITH NERVE PARALYSIS [None]
  - VOMITING [None]
